FAERS Safety Report 12508225 (Version 1)
Quarter: 2016Q2

REPORT INFORMATION
  Report Type: Spontaneous
  Country: US (occurrence: US)
  Receive Date: 20160629
  Receipt Date: 20160629
  Transmission Date: 20160815
  Serious: No
  Sender: FDA-Public Use
  Company Number: US-GLAXOSMITHKLINE-US2016090955

PATIENT
  Age: 47 Year
  Sex: Female

DRUGS (1)
  1. SENSODYNE REPAIR AND PROTECT WHITENING [Suspect]
     Active Substance: STANNOUS FLUORIDE
     Indication: SENSITIVITY OF TEETH
     Dosage: UNK
     Dates: start: 2014, end: 20160623

REACTIONS (6)
  - Gingival erythema [Recovered/Resolved]
  - Gingival swelling [Recovered/Resolved]
  - Cheilitis [Recovered/Resolved]
  - Lip swelling [Not Recovered/Not Resolved]
  - Dysgeusia [Recovered/Resolved]
  - Oral discomfort [Recovered/Resolved]

NARRATIVE: CASE EVENT DATE: 201605
